FAERS Safety Report 13273406 (Version 1)
Quarter: 2017Q1

REPORT INFORMATION
  Report Type: Spontaneous
  Country: CA (occurrence: CA)
  Receive Date: 20170227
  Receipt Date: 20170227
  Transmission Date: 20170428
  Serious: Yes (Hospitalization, Disabling)
  Sender: FDA-Public Use
  Company Number: CA-JNJFOC-20170225374

PATIENT
  Age: 12 Year
  Sex: Female
  Weight: 50 kg

DRUGS (2)
  1. ISOTRETINOIN [Suspect]
     Active Substance: ISOTRETINOIN
     Indication: ACNE
     Route: 048
  2. CONCERTA [Suspect]
     Active Substance: METHYLPHENIDATE HYDROCHLORIDE
     Indication: ATTENTION DEFICIT/HYPERACTIVITY DISORDER
     Route: 048

REACTIONS (9)
  - Blood urine present [Recovering/Resolving]
  - White blood cell count increased [Recovering/Resolving]
  - Crying [Recovering/Resolving]
  - Heart rate increased [Recovering/Resolving]
  - Conversion disorder [Recovering/Resolving]
  - Fear [Recovering/Resolving]
  - Blood pressure increased [Recovering/Resolving]
  - Paranoia [Recovering/Resolving]
  - Hallucination, auditory [Recovering/Resolving]
